FAERS Safety Report 9735467 (Version 2)
Quarter: 2015Q3

REPORT INFORMATION
  Report Type: Spontaneous
  Country: US (occurrence: US)
  Receive Date: 20131206
  Receipt Date: 20150804
  Transmission Date: 20151125
  Serious: No
  Sender: FDA-Public Use
  Company Number: US-GILEAD-2009-0023221

PATIENT
  Age: 70 Year
  Sex: Male
  Weight: 127.1 kg

DRUGS (8)
  1. METOPROLOL [Concomitant]
     Active Substance: METOPROLOL
  2. LETAIRIS [Suspect]
     Active Substance: AMBRISENTAN
     Indication: PULMONARY ARTERIAL HYPERTENSION
     Route: 048
     Dates: start: 20090506
  3. ASPIRIN. [Concomitant]
     Active Substance: ASPIRIN
  4. QUININE SULFATE. [Concomitant]
     Active Substance: QUININE SULFATE
  5. OXYGEN. [Concomitant]
     Active Substance: OXYGEN
  6. VITAMIN C [Concomitant]
     Active Substance: ASCORBIC ACID
  7. LIPITOR [Concomitant]
     Active Substance: ATORVASTATIN CALCIUM
  8. ENALAPRIL-HCTZ [Concomitant]

REACTIONS (1)
  - Ageusia [Unknown]
